FAERS Safety Report 8134290-9 (Version None)
Quarter: 2012Q1

REPORT INFORMATION
  Report Type: 
  Country: None (occurrence: None)
  Receive Date: 20120208
  Receipt Date: 20120127
  Transmission Date: 20120608
  Serious: Yes (Other)
  Sender: FDA-Public Use
  Company Number: AUR-APL-2011-06332

PATIENT
  Age: 84 Year
  Sex: Female

DRUGS (4)
  1. INDAPAMIDE/PERINDOPRIL  ARGININE(NOLIPREL /01553501/) [Suspect]
     Indication: HYPERTENSION
     Dosage: (5 MG),ORAL
     Route: 048
  2. ALPRAZOLAM [Suspect]
     Indication: DEPRESSION
     Dosage: (0.5 MG),ORAL
     Route: 048
     Dates: end: 20101014
  3. MIRTAZAPINE [Suspect]
     Indication: DEPRESSION
     Dosage: (30 MG),ORAL
     Route: 048
     Dates: end: 20101014
  4. INDOBUFEN (INDOBUFEN) [Concomitant]

REACTIONS (4)
  - APHASIA [None]
  - SOPOR [None]
  - SOMNOLENCE [None]
  - BALANCE DISORDER [None]
